FAERS Safety Report 12545023 (Version 1)
Quarter: 2016Q3

REPORT INFORMATION
  Report Type: Spontaneous
  Country: US (occurrence: US)
  Receive Date: 20160711
  Receipt Date: 20160711
  Transmission Date: 20161109
  Serious: Yes (Hospitalization, Other)
  Sender: FDA-Public Use
  Company Number: US-BAYER-2016-134065

PATIENT
  Age: 24 Year
  Sex: Female

DRUGS (1)
  1. MIRENA [Suspect]
     Active Substance: LEVONORGESTREL
     Indication: CONTRACEPTION
     Dosage: 20 MCG/24HR, CONT
     Route: 015
     Dates: start: 201510, end: 20160706

REACTIONS (10)
  - Pelvic inflammatory disease [None]
  - Abdominal pain upper [None]
  - Malaise [None]
  - Feeling abnormal [None]
  - Bacterial vaginosis [None]
  - Vulvovaginal discomfort [None]
  - Vulvovaginal pain [None]
  - Amenorrhoea [None]
  - Adverse reaction [None]
  - Ovarian cyst [None]

NARRATIVE: CASE EVENT DATE: 201605
